FAERS Safety Report 7050200-X (Version None)
Quarter: 2010Q4

REPORT INFORMATION
  Report Type: 
  Country: None (occurrence: None)
  Receive Date: 20101013
  Receipt Date: 20101006
  Transmission Date: 20110411
  Serious: Yes (Hospitalization)
  Sender: FDA-Public Use
  Company Number: 2010MA003377

PATIENT
  Age: 80 Year
  Sex: Male

DRUGS (4)
  1. PHENYTOIN [Suspect]
     Indication: PRODUCT USED FOR UNKNOWN INDICATION
     Dosage: 350 MG; QD;
  2. SENNA [Concomitant]
  3. LEVOTHYROXINE SODIUM [Concomitant]
  4. LEVETIRACETAM [Concomitant]

REACTIONS (7)
  - CONFUSIONAL STATE [None]
  - CREATININE RENAL CLEARANCE DECREASED [None]
  - DRUG TOXICITY [None]
  - HYPOALBUMINAEMIA [None]
  - HYPOPHAGIA [None]
  - LETHARGY [None]
  - MENTAL STATUS CHANGES [None]
